FAERS Safety Report 18240668 (Version 1)
Quarter: 2020Q3

REPORT INFORMATION
  Report Type: Report from Study
  Country: US (occurrence: US)
  Receive Date: 20200908
  Receipt Date: 20200908
  Transmission Date: 20201103
  Serious: Yes (Other)
  Sender: FDA-Public Use
  Company Number: US-PFIZER INC-2020334489

PATIENT
  Age: 61 Year
  Sex: Male

DRUGS (2)
  1. MANNITOL. [Suspect]
     Active Substance: MANNITOL
     Indication: RENAL TUBULAR NECROSIS
     Dosage: 549 MOSM (INFUSED)
     Route: 042
  2. MANNITOL. [Suspect]
     Active Substance: MANNITOL
     Indication: ACUTE KIDNEY INJURY
     Dosage: 100 G (INFUSED)
     Route: 042

REACTIONS (2)
  - Toxicity to various agents [Unknown]
  - Lethargy [Unknown]
